FAERS Safety Report 19904039 (Version 1)
Quarter: 2021Q4

REPORT INFORMATION
  Report Type: Spontaneous
  Country: JP (occurrence: JP)
  Receive Date: 20211001
  Receipt Date: 20211001
  Transmission Date: 20220303
  Serious: Yes (Hospitalization)
  Sender: FDA-Public Use
  Company Number: JP-LUPIN PHARMACEUTICALS INC.-2021-18512

PATIENT
  Age: 4 Year
  Sex: Male

DRUGS (9)
  1. LEVETIRACETAM [Suspect]
     Active Substance: LEVETIRACETAM
     Indication: Epilepsy
     Dosage: 1000 MILLIGRAM
     Route: 065
  2. LEVETIRACETAM [Suspect]
     Active Substance: LEVETIRACETAM
     Dosage: 300 MILLIGRAM
     Route: 065
  3. CLOBAZAM [Suspect]
     Active Substance: CLOBAZAM
     Indication: Epilepsy
     Dosage: 10 MILLIGRAM
     Route: 065
  4. LACOSAMIDE [Suspect]
     Active Substance: LACOSAMIDE
     Indication: Epilepsy
     Dosage: UNK
     Route: 065
  5. PERAMPANEL [Suspect]
     Active Substance: PERAMPANEL
     Indication: Epilepsy
     Dosage: 4 MILLIGRAM
     Route: 065
  6. PERAMPANEL [Suspect]
     Active Substance: PERAMPANEL
     Dosage: 6 MG
     Route: 065
  7. VALPROATE [Suspect]
     Active Substance: VALPROIC ACID
     Indication: Epilepsy
     Dosage: 500 MILLIGRAM
     Route: 065
  8. ETHOSUXIMIDE [Suspect]
     Active Substance: ETHOSUXIMIDE
     Indication: Epilepsy
     Dosage: 500 MILLIGRAM
     Route: 065
  9. ZONISAMIDE [Suspect]
     Active Substance: ZONISAMIDE
     Indication: Epilepsy
     Dosage: UNK
     Route: 065

REACTIONS (1)
  - Drug ineffective [Unknown]
